FAERS Safety Report 11805863 (Version 1)
Quarter: 2015Q4

REPORT INFORMATION
  Report Type: Spontaneous
  Country: IN (occurrence: IN)
  Receive Date: 20151207
  Receipt Date: 20151207
  Transmission Date: 20160305
  Serious: Yes (Hospitalization)
  Sender: FDA-Public Use
  Company Number: IN-ALEMBIC PHARMACUETICALS LIMITED-2015SCAL000845

PATIENT
  Age: 18 Year
  Sex: Male

DRUGS (6)
  1. HALOPERIDOL. [Suspect]
     Active Substance: HALOPERIDOL
     Indication: MANIA
     Dosage: 15 MG, QD
  2. OLANZAPINE. [Suspect]
     Active Substance: OLANZAPINE
     Indication: PSYCHOMOTOR HYPERACTIVITY
     Dosage: 10 MG, QD
  3. LITHIUM CARBONATE. [Suspect]
     Active Substance: LITHIUM CARBONATE
     Indication: MANIA
     Dosage: 900 MG, QD, TABLET
  4. HALOPERIDOL. [Suspect]
     Active Substance: HALOPERIDOL
     Dosage: CROSS TAPERED
  5. LITHIUM CARBONATE. [Suspect]
     Active Substance: LITHIUM CARBONATE
     Dosage: 1350 MG, QD, TABLET
  6. CHLORPROMAZINE. [Suspect]
     Active Substance: CHLORPROMAZINE
     Indication: PSYCHOMOTOR HYPERACTIVITY
     Dosage: UNK

REACTIONS (4)
  - Dysarthria [Recovering/Resolving]
  - Muscle rigidity [Recovering/Resolving]
  - Toxicity to various agents [Unknown]
  - Tremor [Recovering/Resolving]
